FAERS Safety Report 6420907-3 (Version None)
Quarter: 2009Q4

REPORT INFORMATION
  Report Type: 
  Country: None (occurrence: None)
  Receive Date: 20091030
  Receipt Date: 20091022
  Transmission Date: 20100525
  Serious: Yes (Other)
  Sender: FDA-Public Use
  Company Number: US-AMGEN-QUU370755

PATIENT
  Sex: Female

DRUGS (1)
  1. ENBREL [Suspect]
     Indication: RHEUMATOID ARTHRITIS
     Route: 058

REACTIONS (9)
  - ARTHROPATHY [None]
  - ASTHENIA [None]
  - BLOOD PRESSURE INCREASED [None]
  - DYSPNOEA [None]
  - INCORRECT STORAGE OF DRUG [None]
  - PAIN [None]
  - THYROID NEOPLASM [None]
  - WEIGHT DECREASED [None]
  - WEIGHT INCREASED [None]
